FAERS Safety Report 16811068 (Version 4)
Quarter: 2020Q1

REPORT INFORMATION
  Report Type: Spontaneous
  Country: US (occurrence: US)
  Receive Date: 20190916
  Receipt Date: 20200201
  Transmission Date: 20200409
  Serious: Yes (Other)
  Sender: FDA-Public Use
  Company Number: US-BAYER-2019-165153

PATIENT
  Age: 48 Year
  Sex: Male

DRUGS (1)
  1. COPPERTONE SPORT FREE SPF 50 [Suspect]
     Active Substance: AVOBENZONE\HOMOSALATE\OCTISALATE\OCTOCRYLENE
     Dosage: UNK UNK, ONCE
     Route: 061
     Dates: start: 20190829, end: 20190829

REACTIONS (16)
  - Eye pruritus [Not Recovered/Not Resolved]
  - Skin reaction [Not Recovered/Not Resolved]
  - Pruritus [Not Recovered/Not Resolved]
  - Hyperhidrosis [Not Recovered/Not Resolved]
  - Application site irritation [Unknown]
  - Application site haemorrhage [Unknown]
  - Blister [Not Recovered/Not Resolved]
  - Erythema [Not Recovered/Not Resolved]
  - Pustule [Not Recovered/Not Resolved]
  - Eye irritation [Not Recovered/Not Resolved]
  - Wound haemorrhage [Unknown]
  - Rash [Not Recovered/Not Resolved]
  - Pharyngeal swelling [Unknown]
  - Burning sensation [Not Recovered/Not Resolved]
  - Vaginal cyst [Unknown]
  - Application site pain [Unknown]
